FAERS Safety Report 7675252-5 (Version None)
Quarter: 2011Q3

REPORT INFORMATION
  Report Type: 
  Country: None (occurrence: None)
  Receive Date: 20110810
  Receipt Date: 20110803
  Transmission Date: 20111222
  Serious: Yes (Other)
  Sender: FDA-Public Use
  Company Number: GB-PFIZER INC-2011128732

PATIENT
  Age: 61 Year
  Sex: Male

DRUGS (3)
  1. PREGABALIN [Suspect]
     Indication: EPILEPSY
     Dosage: UNK
  2. TOPIRAMATE [Suspect]
     Indication: EPILEPSY
     Dosage: UNK
  3. PHENYTOIN [Suspect]
     Indication: EPILEPSY
     Dosage: UNK

REACTIONS (5)
  - RETINAL HAEMORRHAGE [None]
  - MACULAR OEDEMA [None]
  - RETINAL VEIN OCCLUSION [None]
  - BLOOD HOMOCYSTEINE INCREASED [None]
  - VISUAL ACUITY REDUCED [None]
